FAERS Safety Report 11786152 (Version 1)
Quarter: 2015Q4

REPORT INFORMATION
  Report Type: Spontaneous
  Country: US (occurrence: None)
  Receive Date: 20151125
  Receipt Date: 20151125
  Transmission Date: 20160305
  Serious: No
  Sender: FDA-Public Use
  Company Number: None

PATIENT
  Age: 58 Year
  Sex: Male
  Weight: 106.7 kg

DRUGS (2)
  1. DACLATASVIR. [Suspect]
     Active Substance: DACLATASVIR
     Indication: HEPATITIS C
     Route: 048
     Dates: start: 20150916
  2. SOFOSBUVIR [Suspect]
     Active Substance: SOFOSBUVIR
     Indication: HEPATITIS C
     Route: 048
     Dates: start: 20150916

REACTIONS (8)
  - Agitation [None]
  - Feeling jittery [None]
  - Insomnia [None]
  - Arthralgia [None]
  - Nausea [None]
  - Myalgia [None]
  - Headache [None]
  - Vomiting [None]

NARRATIVE: CASE EVENT DATE: 20151014
